FAERS Safety Report 5124975-0 (Version None)
Quarter: 2006Q4

REPORT INFORMATION
  Report Type: 
  Country: None (occurrence: None)
  Receive Date: 20061011
  Receipt Date: 20061009
  Transmission Date: 20070319
  Serious: Yes (Other)
  Sender: FDA-Public Use
  Company Number: US-GLAXOSMITHKLINE-A0622914A

PATIENT
  Age: 70 Year
  Sex: Female

DRUGS (6)
  1. REQUIP [Suspect]
     Indication: RESTLESS LEGS SYNDROME
     Dosage: 1MG PER DAY
     Route: 048
     Dates: start: 20060201
  2. CRESTOR [Suspect]
     Indication: BLOOD CHOLESTEROL INCREASED
     Dosage: 10MG PER DAY
     Route: 048
     Dates: start: 20060824, end: 20061001
  3. ESTRADIOL INJ [Concomitant]
  4. NEXIUM [Concomitant]
  5. DIOVAN HCT [Concomitant]
  6. VYTORIN [Concomitant]

REACTIONS (1)
  - HEPATIC ENZYME INCREASED [None]
